FAERS Safety Report 5923251-3 (Version None)
Quarter: 2008Q4

REPORT INFORMATION
  Report Type: 
  Country: None (occurrence: None)
  Receive Date: 20081015
  Receipt Date: 20081002
  Transmission Date: 20090506
  Serious: Yes (Other)
  Sender: FDA-Public Use
  Company Number: CIP08001721

PATIENT
  Age: 84 Year
  Sex: Female

DRUGS (7)
  1. ACTONEL [Suspect]
     Dosage: 35 MG ONCE WEEKLY, ORAL, 35 MG ONCE WEEKLY, ORAL
     Route: 048
     Dates: start: 20050101, end: 20070901
  2. ACTONEL [Suspect]
     Dosage: 35 MG ONCE WEEKLY, ORAL, 35 MG ONCE WEEKLY, ORAL
     Route: 048
     Dates: start: 20080101, end: 20080101
  3. LIPITOR [Concomitant]
  4. SYNTHROID [Concomitant]
  5. ASPIRIN [Concomitant]
  6. CALCIUM (CALCIUM) [Concomitant]
  7. VITAMIN D [Concomitant]

REACTIONS (1)
  - CEREBROVASCULAR ACCIDENT [None]
